FAERS Safety Report 8924090 (Version 1)
Quarter: 2012Q4

REPORT INFORMATION
  Report Type: Spontaneous
  Country: US (occurrence: None)
  Receive Date: 20121127
  Receipt Date: 20121127
  Transmission Date: 20130627
  Serious: Yes (Death)
  Sender: FDA-Public Use
  Company Number: None

PATIENT
  Age: 67 Year
  Sex: Male
  Weight: 140.62 kg

DRUGS (2)
  1. HEPARIN [Suspect]
     Indication: CARDIAC CATHETERISATION
     Dates: start: 20120724, end: 20120724
  2. DEXTROSE [Suspect]
     Dates: start: 20120724, end: 20120724

REACTIONS (8)
  - Flushing [None]
  - Pyrexia [None]
  - Chills [None]
  - Neck pain [None]
  - Cough [None]
  - Vomiting [None]
  - Myocardial infarction [None]
  - Post procedural complication [None]
